FAERS Safety Report 7182999-6 (Version None)
Quarter: 2010Q4

REPORT INFORMATION
  Report Type: 
  Country: None (occurrence: None)
  Receive Date: 20101222
  Receipt Date: 20101216
  Transmission Date: 20110411
  Serious: No
  Sender: FDA-Public Use
  Company Number: US-PFIZER INC-2010174914

PATIENT
  Sex: Female
  Weight: 77 kg

DRUGS (8)
  1. TIKOSYN [Suspect]
     Indication: ATRIAL FIBRILLATION
     Dosage: 250 UG, 2X/DAY
     Route: 048
     Dates: start: 20101001
  2. NOVOLOG [Concomitant]
     Indication: DIABETES MELLITUS
     Dosage: 10 IU, 3X/DAY
  3. LANTUS [Concomitant]
     Indication: DIABETES MELLITUS
     Dosage: 16 IU, UNK
  4. WARFARIN [Concomitant]
     Indication: ANTICOAGULANT THERAPY
     Dosage: UNK
     Route: 048
  5. SIMVASTATIN [Concomitant]
     Indication: BLOOD CHOLESTEROL INCREASED
     Dosage: 80 MG, 1X/DAY
  6. METOPROLOL [Concomitant]
     Indication: HYPERTENSION
     Dosage: 25 MG, 2X/DAY
     Route: 048
  7. TUMS [Concomitant]
     Indication: ANTACID THERAPY
     Dosage: 2250 MG, 2X/DAY
     Route: 048
  8. VITAMIN D [Concomitant]
     Dosage: 2000 IU, UNK
     Route: 048

REACTIONS (2)
  - FEELING ABNORMAL [None]
  - FRUSTRATION [None]
